FAERS Safety Report 5085743-1 (Version None)
Quarter: 2006Q3

REPORT INFORMATION
  Report Type: 
  Country: None (occurrence: None)
  Receive Date: 20060822
  Receipt Date: 20050720
  Transmission Date: 20061208
  Serious: No
  Sender: FDA-Public Use
  Company Number: US-BRISTOL-MYERS SQUIBB COMPANY-13045042

PATIENT
  Sex: Male

DRUGS (3)
  1. ZERIT [Suspect]
  2. VIDEX [Concomitant]
  3. VIRACEPT [Concomitant]

REACTIONS (1)
  - LIPODYSTROPHY ACQUIRED [None]
